FAERS Safety Report 5212044-0 (Version None)
Quarter: 2007Q1

REPORT INFORMATION
  Report Type: 
  Country: None (occurrence: None)
  Receive Date: 20070118
  Receipt Date: 20070110
  Transmission Date: 20070707
  Serious: Yes (Hospitalization)
  Sender: FDA-Public Use
  Company Number: US-ELI_LILLY_AND_COMPANY-US200701001841

PATIENT
  Sex: Male

DRUGS (2)
  1. HUMALOG [Suspect]
     Dosage: UNK, UNKNOWN
     Dates: start: 20070109
  2. HUMULIN L [Suspect]
     Dosage: UNK, UNKNOWN
     Dates: end: 20070109

REACTIONS (1)
  - ANAPHYLACTIC SHOCK [None]
